FAERS Safety Report 4365858-3 (Version None)
Quarter: 2004Q2

REPORT INFORMATION
  Report Type: 
  Country: None (occurrence: None)
  Receive Date: 20040526
  Receipt Date: 20040526
  Transmission Date: 20050107
  Serious: Yes (Other)
  Sender: FDA-Public Use
  Company Number: None

PATIENT
  Sex: Male
  Weight: 99.7913 kg

DRUGS (2)
  1. OPTIVAR [Suspect]
     Indication: SEASONAL ALLERGY
     Dosage: 1 DROP TWICE DAIL INTRAOCULAR
     Dates: start: 20031016, end: 20041015
  2. OPTIVAR [Suspect]
     Indication: SEASONAL ALLERGY
     Dosage: 1 DROP TWICE DAIL INTRAOCULAR
     Dates: start: 20040409, end: 20041015

REACTIONS (3)
  - EYE INJURY [None]
  - EYE PAIN [None]
  - PHARMACEUTICAL PRODUCT COMPLAINT [None]
